FAERS Safety Report 20513756 (Version 1)
Quarter: 2022Q1

REPORT INFORMATION
  Report Type: Spontaneous
  Country: US (occurrence: None)
  Receive Date: 20220224
  Receipt Date: 20220224
  Transmission Date: 20220423
  Serious: Yes (Death)
  Sender: FDA-Public Use
  Company Number: None

PATIENT
  Age: 33 Year
  Sex: Male

DRUGS (1)
  1. RETACRIT [Suspect]
     Active Substance: EPOETIN ALFA-EPBX
     Indication: Nephrogenic anaemia
     Dosage: OTHER STRENGTH : 10000 U/ML;?OTHER QUANTITY : 10000 UNITS;?
     Route: 058
     Dates: start: 20210622, end: 20211203

REACTIONS (1)
  - Death [None]

NARRATIVE: CASE EVENT DATE: 20211203
